FAERS Safety Report 18811997 (Version 1)
Quarter: 2021Q1

REPORT INFORMATION
  Report Type: Spontaneous
  Country: JP (occurrence: JP)
  Receive Date: 20210129
  Receipt Date: 20210129
  Transmission Date: 20210419
  Serious: Yes (Other)
  Sender: FDA-Public Use
  Company Number: JP-BRACCO-2021JP00299

PATIENT
  Age: 81 Year
  Sex: Male

DRUGS (1)
  1. IOPAMIRON [Suspect]
     Active Substance: IOPAMIDOL
     Indication: DIAGNOSTIC PROCEDURE
     Dosage: 100 ML, SINGLE
     Dates: start: 201503, end: 201503

REACTIONS (2)
  - Anaphylactic shock [Unknown]
  - Hypoxic-ischaemic encephalopathy [Unknown]
